FAERS Safety Report 5033142-0 (Version None)
Quarter: 2006Q2

REPORT INFORMATION
  Report Type: 
  Country: None (occurrence: None)
  Receive Date: 20060505
  Receipt Date: 20060116
  Transmission Date: 20061013
  Serious: Yes (Other)
  Sender: FDA-Public Use
  Company Number: PHEH2006US00740

PATIENT
  Age: 84 Year
  Sex: Female

DRUGS (3)
  1. DIOVAN HCT [Suspect]
     Indication: HYPERTENSION
     Dosage: 160/25 MG DAILY
     Dates: start: 20030101
  2. POTASSIUM (POTASSIUM) [Concomitant]
  3. SYNTHROID [Concomitant]

REACTIONS (1)
  - HYPERTENSION [None]
